FAERS Safety Report 8761378 (Version 1)
Quarter: 2012Q4

REPORT INFORMATION
  Report Type: 
  Country: IL (occurrence: IL)
  Receive Date: 20120830
  Receipt Date: 20120830
  Transmission Date: 20130627
  Serious: Yes (Hospitalization, Other)
  Sender: FDA-Public Use
  Company Number: IL-PFIZER INC-2012208659

PATIENT
  Age: 63 Year
  Sex: Male

DRUGS (1)
  1. SILDENAFIL CITRATE [Suspect]
     Indication: SEXUAL DYSFUNCTION
     Dosage: 50 mg, as needed
     Route: 065

REACTIONS (2)
  - Grand mal convulsion [Unknown]
  - Grand mal convulsion [Recovered/Resolved]
